FAERS Safety Report 4419871-8 (Version None)
Quarter: 2004Q3

REPORT INFORMATION
  Report Type: 
  Country: None (occurrence: None)
  Receive Date: 20040804
  Receipt Date: 20040709
  Transmission Date: 20050211
  Serious: Yes (Life-Threatening, Hospitalization)
  Sender: FDA-Public Use
  Company Number: US_0406103945

PATIENT
  Age: 23 Year
  Sex: Male

DRUGS (3)
  1. CEFACLOR [Suspect]
     Indication: INFLAMMATION
     Dosage: 250 MG/1 DAY
     Dates: start: 20040608, end: 20040608
  2. CEFACLOR [Suspect]
     Indication: TOOTH DISORDER
     Dosage: 250 MG/1 DAY
     Dates: start: 20040608, end: 20040608
  3. FLURBIPROFEN [Concomitant]

REACTIONS (3)
  - ANAPHYLACTIC SHOCK [None]
  - INJURY ASPHYXIATION [None]
  - LARYNGEAL OEDEMA [None]
